FAERS Safety Report 6763151-2 (Version None)
Quarter: 2010Q2

REPORT INFORMATION
  Report Type: 
  Country: None (occurrence: None)
  Receive Date: 20100608
  Receipt Date: 20100608
  Transmission Date: 20101027
  Serious: Yes (Hospitalization)
  Sender: FDA-Public Use
  Company Number: None

PATIENT
  Age: 81 Year
  Sex: Male
  Weight: 89.1 kg

DRUGS (1)
  1. TERAZOSIN HCL [Suspect]
     Indication: BLADDER OBSTRUCTION
     Dosage: 5 MG HS PO
     Route: 048
     Dates: start: 20060920, end: 20100520

REACTIONS (5)
  - HYPOTENSION [None]
  - MULTIPLE SYSTEM ATROPHY [None]
  - ORTHOSTATIC HYPOTENSION [None]
  - PARKINSON'S DISEASE [None]
  - SYNCOPE [None]
